FAERS Safety Report 7559011-X (Version None)
Quarter: 2011Q2

REPORT INFORMATION
  Report Type: 
  Country: None (occurrence: None)
  Receive Date: 20110621
  Receipt Date: 20110620
  Transmission Date: 20111010
  Serious: No
  Sender: FDA-Public Use
  Company Number: US-PFIZER INC-2011135864

PATIENT
  Sex: Female

DRUGS (4)
  1. CELEBREX [Suspect]
     Indication: BACK INJURY
     Dosage: 200 MG, DAILY
     Route: 048
     Dates: start: 20110601, end: 20110613
  2. CORTISONE ACETATE [Suspect]
     Indication: RASH MACULAR
     Dosage: UNK
     Dates: start: 20110601
  3. METAMUCIL-2 [Concomitant]
     Indication: EXCESSIVE DIETARY FIBRE INTAKE
     Dosage: UNK
     Dates: start: 20110619
  4. BENADRYL [Suspect]
     Indication: RASH MACULAR
     Dosage: 25 MG, UNK
     Route: 048
     Dates: start: 20110601

REACTIONS (4)
  - HEADACHE [None]
  - DRUG DOSE OMISSION [None]
  - DRUG INEFFECTIVE [None]
  - RASH MACULAR [None]
